FAERS Safety Report 5277033-9 (Version None)
Quarter: 2007Q1

REPORT INFORMATION
  Report Type: 
  Country: None (occurrence: None)
  Receive Date: 20070327
  Receipt Date: 20070209
  Transmission Date: 20070707
  Serious: No
  Sender: FDA-Public Use
  Company Number: US-BRISTOL-MYERS SQUIBB COMPANY-13674445

PATIENT
  Age: 41 Year
  Sex: Male
  Weight: 98 kg

DRUGS (5)
  1. ORENCIA [Suspect]
     Indication: RHEUMATOID ARTHRITIS
  2. PREDNISONE [Concomitant]
  3. OXYCODONE HCL [Concomitant]
  4. TOPROL-XL [Concomitant]
  5. OMEGA 3 FISH OIL [Concomitant]

REACTIONS (1)
  - RASH PRURITIC [None]
